FAERS Safety Report 8694000 (Version 3)
Quarter: 2012Q4

REPORT INFORMATION
  Report Type: 
  Country: US (occurrence: US)
  Receive Date: 20120731
  Receipt Date: 20121119
  Transmission Date: 20130627
  Serious: Yes (Hospitalization, Other)
  Sender: FDA-Public Use
  Company Number: PHEH2012US014737

PATIENT
  Age: 72 Year
  Sex: Female
  Weight: 56.2 kg

DRUGS (7)
  1. GLEEVEC [Suspect]
     Indication: CHRONIC MYELOID LEUKAEMIA
     Dosage: 400 mg, QD
     Route: 048
     Dates: start: 200304
  2. GLEEVEC [Suspect]
     Indication: GASTROINTESTINAL STROMAL TUMOUR
     Dosage: 400 mg, daily
     Route: 048
     Dates: start: 20100504
  3. MEGACE [Concomitant]
     Indication: DECREASED APPETITE
     Dosage: UNK UKN, UNK
  4. PROTONIX [Concomitant]
     Indication: GASTROOESOPHAGEAL REFLUX DISEASE
     Dosage: UNK UKN, UNK
  5. EVISTA [Concomitant]
     Indication: OSTEOPOROSIS
     Dosage: UNK UKN, UNK
  6. LASIX [Concomitant]
     Indication: OEDEMA
     Dosage: UNK UKN, UNK
  7. POTASSIUM [Concomitant]
     Indication: BLOOD POTASSIUM DECREASED
     Dosage: UNK UKN, UNK

REACTIONS (7)
  - Hip fracture [Recovered/Resolved]
  - Fall [Unknown]
  - Muscular weakness [Not Recovered/Not Resolved]
  - Supraventricular tachycardia [Recovering/Resolving]
  - Heart rate increased [Unknown]
  - Nasopharyngitis [Unknown]
  - Anaemia [Not Recovered/Not Resolved]
